FAERS Safety Report 10022731 (Version 2)
Quarter: 2014Q2

REPORT INFORMATION
  Report Type: Spontaneous
  Country: US (occurrence: US)
  Receive Date: 20140319
  Receipt Date: 20140410
  Transmission Date: 20141212
  Serious: Yes (Other)
  Sender: FDA-Public Use
  Company Number: US-TEVA-469617USA

PATIENT
  Sex: Female

DRUGS (1)
  1. TRISENOX [Suspect]

REACTIONS (5)
  - Exposure via inhalation [Recovered/Resolved]
  - Nausea [Recovered/Resolved]
  - Vomiting [Recovered/Resolved]
  - Diarrhoea [Recovered/Resolved]
  - Occupational exposure to product [Recovered/Resolved]
